FAERS Safety Report 16054114 (Version 8)
Quarter: 2020Q1

REPORT INFORMATION
  Report Type: Report from Study
  Country: CA (occurrence: CA)
  Receive Date: 20190308
  Receipt Date: 20200327
  Transmission Date: 20200409
  Serious: Yes (Other)
  Sender: FDA-Public Use
  Company Number: CA-ASCEND THERAPEUTICS-2063780

PATIENT
  Age: 60 Year
  Sex: Female

DRUGS (74)
  1. ESTROGEL [Suspect]
     Active Substance: ESTRADIOL
     Indication: PRODUCT USED FOR UNKNOWN INDICATION
  2. PNEUMOCOCCAL VACCINE (PNEUMOCOCCAL VACCINE) UNKNOWN [Concomitant]
     Active Substance: PNEUMOCOCCAL VACCINE POLYVALENT
  3. UMECLIDINIUM BROMIDE (INHALANT) [Suspect]
     Active Substance: UMECLIDINIUM BROMIDE
     Route: 045
  4. XARELTO [Suspect]
     Active Substance: RIVAROXABAN
  5. BREO ELLIPTA [Suspect]
     Active Substance: FLUTICASONE FUROATE\VILANTEROL TRIFENATATE
  6. INFLUENZA VACCINE (INFUENZA VACCINE) UNKNOWN [Concomitant]
     Active Substance: INFLUENZA VIRUS VACCINE
  7. ACTONEL [Suspect]
     Active Substance: RISEDRONATE SODIUM
  8. BREO ELLIPTA [Suspect]
     Active Substance: FLUTICASONE FUROATE\VILANTEROL TRIFENATATE
     Route: 055
  9. FLUTICASONE PROPIONATE. [Suspect]
     Active Substance: FLUTICASONE PROPIONATE
  10. OXYCODONE HYDROCHLORIDE. [Suspect]
     Active Substance: OXYCODONE HYDROCHLORIDE
  11. VENTOLIN [Suspect]
     Active Substance: ALBUTEROL SULFATE
  12. METAMUCIL THERAPY FOR REGULARITY [Concomitant]
     Active Substance: PSYLLIUM HUSK
  13. VITAMINS (VITAMINS NOS) UNKNOWN [Concomitant]
     Active Substance: VITAMINS
  14. RIVAROXABAN (RIVAROXABAN) [Suspect]
     Active Substance: RIVAROXABAN
  15. POLYMOX [Suspect]
     Active Substance: AMOXICILLIN
  16. VITAMIN B12 [Concomitant]
     Active Substance: CYANOCOBALAMIN
  17. MONTELUKAST [Suspect]
     Active Substance: MONTELUKAST SODIUM
  18. COLACE [Suspect]
     Active Substance: DOCUSATE SODIUM
  19. RIVAROXABAN (RIVAROXABAN) [Suspect]
     Active Substance: RIVAROXABAN
  20. FORMOTEROL [Concomitant]
     Active Substance: FORMOTEROL
  21. FLUCONAZOLE. [Suspect]
     Active Substance: FLUCONAZOLE
     Route: 042
  22. ALBUTEROL (+) IPRATROPIUM BROMIDE (SALBUTAMOL, IPRATROPIUM) [Suspect]
     Active Substance: ALBUTEROL\IPRATROPIUM BROMIDE
  23. ATOCK (FORMOTEROL FUMURATE) [Suspect]
     Active Substance: FORMOTEROL FUMARATE
  24. NICOTINAMIDE [Concomitant]
     Active Substance: NIACINAMIDE
  25. SINGULAIR [Suspect]
     Active Substance: MONTELUKAST SODIUM
  26. MONTELUKAST [Suspect]
     Active Substance: MONTELUKAST SODIUM
  27. ESTROGEL [Suspect]
     Active Substance: ESTRADIOL
  28. BREO ELLIPTA [Suspect]
     Active Substance: FLUTICASONE FUROATE\VILANTEROL TRIFENATATE
     Route: 045
  29. FORMOTEROL FUMARATE (FORMOTEROL FUMARATE) UNKNOWN [Suspect]
     Active Substance: FORMOTEROL FUMARATE
     Route: 055
  30. NYSTATIN. [Suspect]
     Active Substance: NYSTATIN
     Route: 048
  31. NYSTATIN. [Suspect]
     Active Substance: NYSTATIN
  32. CLARITHROMYCIN. [Suspect]
     Active Substance: CLARITHROMYCIN
  33. RIVAROXABAN [Suspect]
     Active Substance: RIVAROXABAN
  34. AMOXICILLIN, CLARITHRONYCIN, ESMOEPRAZOLE MAGNESIUM (AMOXICILLIN TRIHY [Suspect]
     Active Substance: AMOXICILLIN\CLARITHROMYCIN\ESOMEPRAZOLE
  35. PULMICORT TURBUHALER [Concomitant]
     Active Substance: BUDESONIDE
  36. CLARITHROMYCIN. [Suspect]
     Active Substance: CLARITHROMYCIN
  37. AMOXICILLIN. [Suspect]
     Active Substance: AMOXICILLIN
  38. CALCIUM  D PANTOTHENATE (CALCIUM PANTOTHENATE) UNKNOWN [Concomitant]
     Active Substance: CALCIUM PANTOTHENATE
  39. PYRIDOXINE HYDROCHLORIDE. [Concomitant]
     Active Substance: PYRIDOXINE HYDROCHLORIDE
  40. PREDNISONE. [Suspect]
     Active Substance: PREDNISONE
  41. COLACE [Suspect]
     Active Substance: DOCUSATE SODIUM
  42. HYDROCORTISONE, KETOCONAZOLE (CREAM) [Suspect]
     Active Substance: HYDROCORTISONE\KETOCONAZOLE
     Route: 054
  43. ALBUTEROL (SALBUTAMOL) [Suspect]
     Active Substance: ALBUTEROL
  44. FLUTICASONE. [Suspect]
     Active Substance: FLUTICASONE
  45. SINGULAIR [Suspect]
     Active Substance: MONTELUKAST SODIUM
  46. COLACE [Suspect]
     Active Substance: DOCUSATE SODIUM
  47. VENTOLIN [Suspect]
     Active Substance: ALBUTEROL SULFATE
  48. PREDNISONE. [Suspect]
     Active Substance: PREDNISONE
  49. FORADIL [Suspect]
     Active Substance: FORMOTEROL FUMARATE
  50. NYSTATIN. [Suspect]
     Active Substance: NYSTATIN
     Route: 048
  51. OXYNEO (OXYCODONE HYDROCHLORIDE) [Suspect]
     Active Substance: OXYCODONE HYDROCHLORIDE
  52. OXYCODONE [Suspect]
     Active Substance: OXYCODONE
  53. CHOLINE (CHOLINE) UNKNOWN [Concomitant]
     Active Substance: CHOLINE
  54. RIBOFLAVIN (RIBOFLAVIN) UNKNOWN [Concomitant]
     Active Substance: RIBOFLAVIN
  55. THIAMINE HYDROCHLORIDE. [Concomitant]
     Active Substance: THIAMINE HYDROCHLORIDE
  56. OXYCODONE HYDROCHLORIDE. [Suspect]
     Active Substance: OXYCODONE HYDROCHLORIDE
  57. UMECLIDINIUM BROMIDE (INHALANT) [Suspect]
     Active Substance: UMECLIDINIUM BROMIDE
  58. XARELTO [Suspect]
     Active Substance: RIVAROXABAN
  59. AIROMIR (SALBUTAMOL SULFATE) UNKNOWN METERED DOSE (AEROSOL) FREQUENCY: [Suspect]
     Active Substance: ALBUTEROL SULFATE
  60. FORMOTEROL FUMARATE (FORMOTEROL FUMARATE) UNKNOWN [Suspect]
     Active Substance: FORMOTEROL FUMARATE
     Route: 055
  61. HYDROCORTISONE ACETATE AND PRAMOXINE HYDROCHLORIDE [Suspect]
     Active Substance: HYDROCORTISONE ACETATE\PRAMOXINE HYDROCHLORIDE
  62. FORMOTEROL (FORMOTEROL FUMARATE) [Suspect]
     Active Substance: FORMOTEROL FUMARATE
  63. PROCTOCREAM HC [Suspect]
     Active Substance: HYDROCORTISONE
     Route: 054
  64. PANTOPRAZOLE (PANTOPRAZOLE) [Suspect]
     Active Substance: PANTOPRAZOLE SODIUM
  65. PREDNISONE. [Suspect]
     Active Substance: PREDNISONE
  66. BREO ELLIPTA [Suspect]
     Active Substance: FLUTICASONE FUROATE\VILANTEROL TRIFENATATE
     Route: 045
  67. FLUCONAZOLE. [Suspect]
     Active Substance: FLUCONAZOLE
     Route: 045
  68. OXYCODONE [Suspect]
     Active Substance: OXYCODONE
  69. HYDROCORTISONE ACETATE AND PRAMOXINE HYDROCHLORIDE, ZINC SULFATE [Suspect]
     Active Substance: HYDROCORTISONE ACETATE\PRAMOXINE HYDROCHLORIDE\ZINC SULFATE
  70. FLUCONAZOLE, SODIUM CHLORIDE (SODIUM CHLORIDE, FLUCONAZOLE) [Suspect]
     Active Substance: FLUCONAZOLE
     Route: 042
  71. AMOXICILLIN\CLARITHROMYCIN\PANTOPRAZOLE [Suspect]
     Active Substance: AMOXICILLIN\CLARITHROMYCIN\PANTOPRAZOLE
  72. OXYCODONE HYDROCHLORIDE. [Suspect]
     Active Substance: OXYCODONE HYDROCHLORIDE
  73. SINGULAIR [Suspect]
     Active Substance: MONTELUKAST SODIUM
  74. FORADIL [Suspect]
     Active Substance: FORMOTEROL FUMARATE

REACTIONS (37)
  - Weight increased [Unknown]
  - Sinusitis fungal [Unknown]
  - Lower respiratory tract infection [Unknown]
  - Sinusitis [Unknown]
  - Pulmonary embolism [Unknown]
  - Dyspnoea [Unknown]
  - Gastrooesophageal reflux disease [Unknown]
  - Respiratory symptom [Unknown]
  - Oedema peripheral [Unknown]
  - Chest discomfort [Unknown]
  - Cough [Unknown]
  - Osteoporosis [Unknown]
  - Wheezing [Unknown]
  - Diastolic dysfunction [Unknown]
  - Emphysema [Unknown]
  - Hysterectomy [Unknown]
  - Nasal polyps [Unknown]
  - Sputum increased [Unknown]
  - Abdominal discomfort [Unknown]
  - Asthma [Unknown]
  - Candida infection [Unknown]
  - Chronic sinusitis [Unknown]
  - Dyspnoea exertional [Unknown]
  - Fungal infection [Unknown]
  - Iron deficiency anaemia [Unknown]
  - Salpingo-oophorectomy unilateral [Unknown]
  - Tricuspid valve incompetence [Unknown]
  - Deep vein thrombosis [Unknown]
  - Disease recurrence [Unknown]
  - Diverticulum [Unknown]
  - Eczema [Unknown]
  - Female genital tract fistula [Unknown]
  - Osteoarthritis [Unknown]
  - Embolism venous [Unknown]
  - Hiatus hernia [Unknown]
  - Obstructive airways disorder [Unknown]
  - Sleep apnoea syndrome [Unknown]
